FAERS Safety Report 4322896-4 (Version None)
Quarter: 2004Q1

REPORT INFORMATION
  Report Type: 
  Country: None (occurrence: None)
  Receive Date: 20040324
  Receipt Date: 20040304
  Transmission Date: 20041129
  Serious: Yes (Hospitalization)
  Sender: FDA-Public Use
  Company Number: WAES 0403USA00764

PATIENT
  Age: 57 Year
  Sex: Female
  Weight: 62 kg

DRUGS (9)
  1. TRUSOPT [Suspect]
     Indication: OCULAR HYPERTENSION
     Route: 047
     Dates: start: 20001114, end: 20001219
  2. FLUOROMETHOLONE [Suspect]
     Indication: UVEITIS
     Route: 047
     Dates: start: 19950424, end: 20001219
  3. GLICLAZIDE [Concomitant]
     Indication: DIABETES MELLITUS
  4. GRANULOCYTE COLONY STIMULATING FACTOR (UNSPECIFIED) [Concomitant]
  5. PREDNISOLONE [Concomitant]
  6. TIMOPTIC [Suspect]
     Indication: UVEITIS
     Route: 047
     Dates: start: 20001114, end: 20001219
  7. TIMOPTIC [Suspect]
     Route: 047
     Dates: start: 19981024
  8. TIMOPTIC [Suspect]
     Indication: GLAUCOMA
     Route: 047
     Dates: start: 20001114, end: 20001219
  9. TIMOPTIC [Suspect]
     Route: 047
     Dates: start: 19981024

REACTIONS (11)
  - BACTERIAL CORNEAL ULCER [None]
  - CATARACT [None]
  - CORNEAL ULCER [None]
  - FOREIGN BODY TRAUMA [None]
  - HYPOPYON [None]
  - INTRAOCULAR PRESSURE INCREASED [None]
  - IRITIS [None]
  - PANCYTOPENIA [None]
  - PUNCTATE KERATITIS [None]
  - RETINAL HAEMORRHAGE [None]
  - SHIFT TO THE LEFT [None]
